FAERS Safety Report 10516143 (Version 1)
Quarter: 2014Q4

REPORT INFORMATION
  Report Type: Spontaneous
  Country: FR (occurrence: None)
  Receive Date: 20141009
  Receipt Date: 20141009
  Transmission Date: 20150528
  Serious: Yes (Death, Other)
  Sender: FDA-Public Use
  Company Number: VAL_03474_2014

PATIENT
  Age: 25 Year
  Sex: Female

DRUGS (4)
  1. NICARDIPINE HYDROCHLORIDE. [Suspect]
     Active Substance: NICARDIPINE HYDROCHLORIDE
     Indication: PRODUCT USED FOR UNKNOWN INDICATION
     Dosage: (DF) (NOT OTHERWISE SPECIFIED)
     Route: 042
  2. DOBUTAMINE [Suspect]
     Active Substance: DOBUTAMINE\DOBUTAMINE HYDROCHLORIDE
     Indication: PRODUCT USED FOR UNKNOWN INDICATION
     Dosage: (DF)
  3. COROTROP [Suspect]
     Active Substance: MILRINONE LACTATE
     Indication: PRODUCT USED FOR UNKNOWN INDICATION
     Dosage: (DF)
  4. BROMOCRIPTINE [Suspect]
     Active Substance: BROMOCRIPTINE
     Indication: PRODUCT USED FOR UNKNOWN INDICATION

REACTIONS (11)
  - Right ventricular dysfunction [None]
  - General physical health deterioration [None]
  - Troponin increased [None]
  - HLA marker study positive [None]
  - Dilatation ventricular [None]
  - Cardiac output decreased [None]
  - Heart transplant [None]
  - Mitral valve incompetence [None]
  - Multi-organ failure [None]
  - Peripartum cardiomyopathy [None]
  - Brain natriuretic peptide increased [None]
